FAERS Safety Report 8968925 (Version 1)
Quarter: 2012Q4

REPORT INFORMATION
  Report Type: Spontaneous
  Country: AU (occurrence: None)
  Receive Date: 20121210
  Receipt Date: 20121210
  Transmission Date: 20130627
  Serious: Yes (Other)
  Sender: FDA-Public Use
  Company Number: AU-010243

PATIENT
  Age: 67 Year
  Sex: Male

DRUGS (8)
  1. DEGARELIX [Suspect]
     Indication: PROSTATE CANCER
     Dosage: 80 mg 1x/month Subcutaneous
     Route: 058
     Dates: start: 20110920, end: 20121126
  2. ENOXAPARIN [Concomitant]
  3. MAREVAN [Concomitant]
  4. ATENOLOL [Concomitant]
  5. ROSUVASTATIN [Concomitant]
  6. PARACETAMOL/CODEINE [Concomitant]
  7. TRAMADOL [Concomitant]
  8. TEMAZEPAM [Concomitant]

REACTIONS (2)
  - Urticaria [None]
  - Pruritus [None]
